FAERS Safety Report 9322770 (Version 2)
Quarter: 2013Q4

REPORT INFORMATION
  Report Type: Spontaneous
  Country: US (occurrence: US)
  Receive Date: 20130601
  Receipt Date: 20131220
  Transmission Date: 20140711
  Serious: Yes (Hospitalization, Other)
  Sender: FDA-Public Use
  Company Number: US-ASTRAZENECA-2013SE38602

PATIENT
  Age: 50 Year
  Sex: Female
  Weight: 103.4 kg

DRUGS (15)
  1. NEXIUM [Suspect]
     Indication: DYSPEPSIA
     Route: 048
     Dates: start: 2003, end: 2005
  2. NEXIUM [Suspect]
     Indication: GASTROOESOPHAGEAL REFLUX DISEASE
     Route: 048
     Dates: start: 2003, end: 2005
  3. OMEPRAZOLE [Suspect]
     Indication: GASTROOESOPHAGEAL REFLUX DISEASE
     Route: 048
     Dates: start: 2010, end: 2013
  4. OMEPRAZOLE [Suspect]
     Indication: GASTROOESOPHAGEAL REFLUX DISEASE
     Route: 048
  5. PREVACID [Concomitant]
     Dates: start: 2006, end: 2010
  6. ZANTAC [Concomitant]
     Dates: start: 2000
  7. ROLAIDS [Concomitant]
     Dosage: AS NEEDED
  8. ASPIRINE [Concomitant]
  9. LAMICTAL [Concomitant]
     Indication: BIPOLAR DISORDER
  10. CRESTOR [Concomitant]
     Indication: BLOOD CHOLESTEROL
  11. SYNTHROID [Concomitant]
     Indication: THYROID DISORDER
  12. LYRICA [Concomitant]
  13. METOPROLOL [Concomitant]
  14. LORCET [Concomitant]
     Indication: PAIN
     Dosage: 10/325 FOUR TIMES A DAY
  15. FLEXERIL [Concomitant]

REACTIONS (12)
  - Pelvic fracture [Unknown]
  - Facial bones fracture [Unknown]
  - Fall [Unknown]
  - Loss of consciousness [Unknown]
  - Osteoporosis [Unknown]
  - Bone disorder [Unknown]
  - Osteopenia [Unknown]
  - Ankle fracture [Unknown]
  - Skeletal injury [Unknown]
  - Peripheral arterial occlusive disease [Unknown]
  - Rickets [Unknown]
  - Stress fracture [Unknown]
